FAERS Safety Report 8150631 (Version 3)
Quarter: 2013Q3

REPORT INFORMATION
  Report Type: Spontaneous
  Country: US (occurrence: US)
  Receive Date: 20110922
  Receipt Date: 20130726
  Transmission Date: 20140515
  Serious: Yes (Other)
  Sender: FDA-Public Use
  Company Number: US-ASTRAZENECA-2011SE12592

PATIENT
  Age: 55 Year
  Sex: Female

DRUGS (17)
  1. SEROQUEL [Suspect]
     Route: 048
     Dates: start: 20050214
  2. SEROQUEL [Suspect]
     Route: 048
     Dates: start: 20050301
  3. SEROQUEL [Suspect]
     Route: 048
     Dates: start: 20060703
  4. SEROQUEL [Suspect]
     Route: 048
     Dates: start: 200807
  5. SEROQUEL [Suspect]
     Route: 048
     Dates: start: 20090204
  6. TRAZADONE [Concomitant]
     Dates: start: 20070406
  7. TRAZADONE [Concomitant]
     Dates: start: 200807
  8. TRAZADONE [Concomitant]
     Dates: start: 20090204
  9. CARBAMAZEPINE [Concomitant]
     Dates: start: 20070406
  10. BUPROPION SR [Concomitant]
     Dosage: 100 MG 8 AM AND 2 PM
     Dates: start: 20070406
  11. BUPROPION SR [Concomitant]
     Dates: start: 20090204
  12. TEGRETOL [Concomitant]
     Dates: start: 200807
  13. TEGRETOL [Concomitant]
     Dates: start: 20090204
  14. PROTONIX [Concomitant]
     Dates: start: 200807
  15. PROTONIX [Concomitant]
     Dates: start: 20090204
  16. XOPENEX [Concomitant]
     Dosage: PRN
     Dates: start: 20090204
  17. TRICOR [Concomitant]
     Dates: start: 20090204

REACTIONS (4)
  - Pancreatitis [Unknown]
  - Diabetic coma [Unknown]
  - Type 2 diabetes mellitus [Unknown]
  - Diabetes mellitus inadequate control [Unknown]
